FAERS Safety Report 18424829 (Version 2)
Quarter: 2020Q4

REPORT INFORMATION
  Report Type: Other
  Country: US (occurrence: US)
  Receive Date: 20201026
  Receipt Date: 20201229
  Transmission Date: 20210114
  Serious: Yes (Other)
  Sender: FDA-Public Use
  Company Number: US-ROCHE-2697899

PATIENT
  Age: 59 Year
  Sex: Female
  Weight: 54.48 kg

DRUGS (12)
  1. ESTRADIOL. [Concomitant]
     Active Substance: ESTRADIOL
     Indication: HYSTERECTOMY
     Dosage: STARTED AT AGE 25 ;ONGOING: YES
     Route: 048
  2. MELATONIN [Concomitant]
     Active Substance: MELATONIN
     Indication: INSOMNIA
     Dosage: STARTED ABOUT 6 TO 7 YEARS AGO ON AND OFF ;ONGOING: YES
     Route: 048
  3. ACYCLOVIR. [Concomitant]
     Active Substance: ACYCLOVIR
     Indication: HERPES ZOSTER
     Dosage: 5% OINTMENT
     Route: 061
  4. EXCEDRIN (UNITED STATES) [Concomitant]
     Indication: BACK PAIN
     Route: 048
     Dates: start: 2004
  5. OCREVUS [Suspect]
     Active Substance: OCRELIZUMAB
     Indication: RELAPSING-REMITTING MULTIPLE SCLEROSIS
     Dosage: 2 HALF DOSES 2ND HALF DOSE ON 30/DEC/2019 ?(PRESCRIBED INFUSE 300 MG IV AND THEN REPEAT 2 WEEKS)
     Route: 042
     Dates: start: 20191216
  6. ESTRADIOL. [Concomitant]
     Active Substance: ESTRADIOL
     Indication: MENOPAUSAL SYMPTOMS
  7. ACYCLOVIR. [Concomitant]
     Active Substance: ACYCLOVIR
     Indication: ORAL HERPES
  8. ROBAXIN [Concomitant]
     Active Substance: METHOCARBAMOL
     Indication: PAIN
     Dosage: AS NEEDED ONLY FOR SEVERE PAIN ;ONGOING: YES
     Route: 048
  9. DICYCLOMINE [Concomitant]
     Active Substance: DICYCLOMINE HYDROCHLORIDE
     Indication: DIVERTICULITIS
     Dosage: AS NEEDED MAY TAKE 2 TO 3 TIMES IN A MONTH ;ONGOING: YES
     Route: 048
     Dates: start: 2000
  10. VITAMIN D3 [Concomitant]
     Active Substance: CHOLECALCIFEROL
     Dosage: STARTED ABOUT 6 YEARS AGO ;ONGOING: YES
     Route: 048
  11. BIOTIN [Concomitant]
     Active Substance: BIOTIN
     Route: 048
  12. NORCO [Concomitant]
     Active Substance: ACETAMINOPHEN\HYDROCODONE BITARTRATE
     Indication: BACK PAIN
     Route: 048
     Dates: start: 2004

REACTIONS (7)
  - Oral herpes [Recovering/Resolving]
  - Back pain [Not Recovered/Not Resolved]
  - Spinal osteoarthritis [Not Recovered/Not Resolved]
  - Sinusitis [Not Recovered/Not Resolved]
  - Facet joint syndrome [Not Recovered/Not Resolved]
  - Muscular weakness [Not Recovered/Not Resolved]
  - Multiple sclerosis [Not Recovered/Not Resolved]

NARRATIVE: CASE EVENT DATE: 2020
